FAERS Safety Report 8010561-1 (Version None)
Quarter: 2011Q4

REPORT INFORMATION
  Report Type: 
  Country: None (occurrence: None)
  Receive Date: 20111222
  Receipt Date: 20111212
  Transmission Date: 20120403
  Serious: Yes (Other)
  Sender: FDA-Public Use
  Company Number: 1000026277

PATIENT
  Age: 42 Year
  Sex: Female

DRUGS (3)
  1. VIIBRYD [Suspect]
     Indication: DEPRESSION
     Dosage: 20 MG, (20 MG,1 IN 1 D),ORAL  ; 10 MG (10 MG,1 IN 1 D),ORAL
     Route: 048
     Dates: start: 20111205, end: 20111212
  2. VIIBRYD [Suspect]
     Indication: DEPRESSION
     Dosage: 20 MG, (20 MG,1 IN 1 D),ORAL  ; 10 MG (10 MG,1 IN 1 D),ORAL
     Route: 048
     Dates: start: 20111128, end: 20111204
  3. VIIBRYD [Suspect]
     Indication: DEPRESSION
     Dosage: 10 MG (10 MG,1 IN 1 D),ORAL
     Route: 048
     Dates: start: 20111121, end: 20111127

REACTIONS (4)
  - TREMOR [None]
  - PARAESTHESIA [None]
  - MOVEMENT DISORDER [None]
  - SPEECH DISORDER [None]
